FAERS Safety Report 12070811 (Version 6)
Quarter: 2017Q1

REPORT INFORMATION
  Report Type: Report from Study
  Country: US (occurrence: US)
  Receive Date: 20160211
  Receipt Date: 20170224
  Transmission Date: 20170428
  Serious: Yes (Hospitalization)
  Sender: FDA-Public Use
  Company Number: US-AEGERION PHARMACEUTICAL INC.-AEGR002377

PATIENT
  Age: 68 Year
  Sex: Female

DRUGS (20)
  1. METOPROLOL TARTRATE. [Concomitant]
     Active Substance: METOPROLOL TARTRATE
     Indication: HYPERTENSION
     Dosage: 100 MG, QD
     Route: 048
     Dates: start: 2006
  2. NEXIUM [Concomitant]
     Active Substance: ESOMEPRAZOLE MAGNESIUM
     Indication: GASTROOESOPHAGEAL REFLUX DISEASE
     Dosage: 40 MG, QD
     Route: 048
     Dates: start: 2006
  3. APIXABAN [Concomitant]
     Active Substance: APIXABAN
     Indication: CONDITION AGGRAVATED
  4. FUROSEMIDE. [Concomitant]
     Active Substance: FUROSEMIDE
     Indication: HYPERTENSION
     Dosage: 20 MG, QD
     Route: 048
     Dates: start: 2006
  5. PLAVIX [Concomitant]
     Active Substance: CLOPIDOGREL BISULFATE
     Indication: PERIPHERAL VASCULAR DISORDER
     Dosage: 75 MG, QD
     Route: 048
     Dates: start: 2006
  6. CELESTONE [Concomitant]
     Active Substance: BETAMETHASONE
     Indication: TRIGEMINAL NEURALGIA
     Dosage: 12 MG, ONE TIME DOSE
     Route: 030
     Dates: start: 20151207, end: 20151207
  7. DEPO-MEDROL [Concomitant]
     Active Substance: METHYLPREDNISOLONE ACETATE
     Indication: TRIGEMINAL NEURALGIA
     Dosage: 80 MG, ONE TIME DOSE
     Route: 030
     Dates: start: 20151207, end: 20151207
  8. JUXTAPID [Suspect]
     Active Substance: LOMITAPIDE MESYLATE
     Dosage: UNK
  9. ASPIRIN. [Concomitant]
     Active Substance: ASPIRIN
     Indication: PERIPHERAL VASCULAR DISORDER
     Dosage: 81 MG, QD
     Route: 048
     Dates: start: 20090626
  10. NEURONTIN [Concomitant]
     Active Substance: GABAPENTIN
     Indication: TRIGEMINAL NEURALGIA
     Dosage: 300 MG, TID
     Route: 048
     Dates: start: 20160301
  11. JUXTAPID [Suspect]
     Active Substance: LOMITAPIDE MESYLATE
     Indication: TYPE IIA HYPERLIPIDAEMIA
     Dosage: 5 MG, QD
     Route: 048
     Dates: start: 20150331, end: 20151201
  12. ATORVASTATIN [Concomitant]
     Active Substance: ATORVASTATIN
     Indication: DYSLIPIDAEMIA
     Dosage: 80 MG, QD
     Route: 048
     Dates: start: 20131209
  13. CHANTIX [Concomitant]
     Active Substance: VARENICLINE TARTRATE
     Indication: SMOKING CESSATION THERAPY
     Dosage: 1 MG, UNK
     Route: 048
     Dates: start: 20150323
  14. CYMBALTA [Concomitant]
     Active Substance: DULOXETINE HYDROCHLORIDE
     Indication: PERIPHERAL VASCULAR DISORDER
     Dosage: 30 MG, QD
     Route: 048
     Dates: start: 20150331
  15. CYMBALTA [Concomitant]
     Active Substance: DULOXETINE HYDROCHLORIDE
     Dosage: 60 MG, QD
     Route: 048
     Dates: start: 20150331
  16. APIXABAN [Concomitant]
     Active Substance: APIXABAN
     Indication: CARDIOVASCULAR DISORDER
     Dosage: 5 MG, BID
     Route: 048
     Dates: start: 20160301
  17. CLOPIDOGREL BISULFATE. [Concomitant]
     Active Substance: CLOPIDOGREL BISULFATE
     Indication: PERIPHERAL VASCULAR DISORDER
     Dosage: 75 MG, QD
     Route: 048
     Dates: start: 20160301
  18. FERREX 150 FORTE [Concomitant]
     Active Substance: CYANOCOBALAMIN\FOLIC ACID\IRON
     Indication: NUTRITIONAL SUPPLEMENTATION
     Dosage: 150 MG-25-1, BID
     Route: 048
     Dates: start: 20160301
  19. NICOTINE. [Concomitant]
     Active Substance: NICOTINE
     Indication: SMOKING CESSATION THERAPY
     Dosage: 21 MG, QD
     Route: 061
     Dates: start: 20150323
  20. COLACE [Concomitant]
     Active Substance: DOCUSATE SODIUM
     Indication: PRODUCT USED FOR UNKNOWN INDICATION
     Dosage: 100 MG, BID
     Route: 048
     Dates: start: 20160309

REACTIONS (7)
  - Carotid artery disease [Recovered/Resolved]
  - Blood potassium increased [Recovered/Resolved]
  - Dizziness [Recovered/Resolved]
  - Anxiety [Not Recovered/Not Resolved]
  - Anaemia [Recovered/Resolved]
  - Haematoma [Recovered/Resolved]
  - Gait disturbance [Recovered/Resolved]

NARRATIVE: CASE EVENT DATE: 20160106
